FAERS Safety Report 8798539 (Version 5)
Quarter: 2014Q2

REPORT INFORMATION
  Report Type: Report from Study
  Country: JP (occurrence: JP)
  Receive Date: 20120920
  Receipt Date: 20140618
  Transmission Date: 20141212
  Serious: Yes (Other)
  Sender: FDA-Public Use
  Company Number: JP-VERTEX PHARMACEUTICAL INC.-2012-021500

PATIENT
  Age: 60 Year
  Sex: Female

DRUGS (26)
  1. VX-950 (TELAPREVIR) [Suspect]
     Indication: CHRONIC HEPATITIS C
     Dosage: 750 MG, QD
     Route: 048
     Dates: start: 20120720, end: 20120726
  2. VX-950 (TELAPREVIR) [Suspect]
     Dosage: 1500 MG, QD
     Route: 048
     Dates: start: 20120727, end: 20121010
  3. RIBAVIRIN [Suspect]
     Indication: CHRONIC HEPATITIS C
     Dosage: 400 MG, QD
     Route: 048
     Dates: start: 20120720, end: 20120822
  4. RIBAVIRIN [Suspect]
     Dosage: 600 MG, QD
     Route: 048
     Dates: start: 20120823, end: 20121010
  5. RIBAVIRIN [Suspect]
     Dosage: 400 MG, QD
     Route: 048
     Dates: start: 20121011, end: 20121122
  6. RIBAVIRIN [Suspect]
     Dosage: 600 MG, QD
     Route: 048
     Dates: start: 20121123, end: 20121129
  7. RIBAVIRIN [Suspect]
     Dosage: 800 MG, QD
     Route: 048
     Dates: start: 20121130, end: 20130117
  8. PEGINTRON [Suspect]
     Indication: CHRONIC HEPATITIS C
     Dosage: 1.1 ?G/KG, QW
     Route: 058
     Dates: start: 20120720, end: 20120726
  9. PEGINTRON [Suspect]
     Dosage: 0.6 ?G/KG, QW
     Route: 058
     Dates: start: 20120727, end: 20120808
  10. PEGINTRON [Suspect]
     Dosage: 0.28 ?G/KG, QW
     Route: 058
     Dates: start: 20120809, end: 20121018
  11. PEGINTRON [Suspect]
     Dosage: 0.57 ?G/KG, QW
     Route: 058
     Dates: start: 20121025, end: 20121025
  12. PEGINTRON [Suspect]
     Dosage: 0.71 ?G/KG, QW
     Route: 058
     Dates: start: 20121101, end: 20121115
  13. PEGINTRON [Suspect]
     Dosage: 0.85 ?G/KG, QW
     Route: 058
     Dates: start: 20121122, end: 20121129
  14. PEGINTRON [Suspect]
     Dosage: 1.14 ?G/KG, QW
     Route: 058
     Dates: start: 20121206, end: 20121220
  15. PEGINTRON [Suspect]
     Dosage: 0.57 ?G/KG, QW
     Route: 058
     Dates: start: 20121227, end: 20130124
  16. AMLODIPINE [Concomitant]
     Dosage: 2.5 MG, QD
     Route: 048
  17. CALONAL [Concomitant]
     Dosage: 300 MG, PRN
     Route: 048
     Dates: start: 20120721
  18. ALLELOCK [Concomitant]
     Dosage: 10 MG, PRN
     Route: 048
     Dates: start: 20120724
  19. ALLELOCK [Concomitant]
     Dosage: 10 MG, QD
     Route: 048
     Dates: end: 20120926
  20. TAKEPRON [Concomitant]
     Dosage: 15 MG, QD
     Route: 048
     Dates: start: 20120727, end: 20130102
  21. DERMOVATE [Concomitant]
     Dosage: 5 G, PRN
     Route: 061
     Dates: start: 20120727
  22. HUSCODE [Concomitant]
     Dosage: 9 DF, QD
     Route: 048
     Dates: start: 20120927, end: 20121031
  23. CRAVIT [Concomitant]
     Dosage: 500 MG, QD
     Route: 048
     Dates: start: 20120927, end: 20121002
  24. CRAVIT [Concomitant]
     Dosage: 500 MG, QD
     Route: 048
     Dates: start: 20121018, end: 20121024
  25. TALION [Concomitant]
     Dosage: 20 MG, QD
     Route: 048
     Dates: end: 20121031
  26. OLMETEC [Concomitant]
     Dosage: 20 MG, QD
     Route: 048

REACTIONS (4)
  - Hallucination [Recovered/Resolved]
  - Neutrophil count decreased [Recovered/Resolved]
  - White blood cell count decreased [Recovered/Resolved]
  - Retinopathy [Recovering/Resolving]
